FAERS Safety Report 10560623 (Version 2)
Quarter: 2015Q1

REPORT INFORMATION
  Report Type: Spontaneous
  Country: JP (occurrence: JP)
  Receive Date: 20141103
  Receipt Date: 20150217
  Transmission Date: 20150720
  Serious: Yes (Other)
  Sender: FDA-Public Use
  Company Number: JP-MALLINCKRODT-T201403919

PATIENT
  Age: 56 Year
  Sex: Male
  Weight: 61 kg

DRUGS (11)
  1. SUGAMMADEX SODIUM [Concomitant]
     Active Substance: SUGAMMADEX SODIUM
     Dosage: 200 MG
     Route: 041
     Dates: start: 20141009, end: 20141009
  2. CHICHINA [Concomitant]
     Dosage: 100 MG
     Route: 041
     Dates: start: 20141009, end: 20141009
  3. OFIRMEV [Suspect]
     Active Substance: ACETAMINOPHEN
     Indication: POSTOPERATIVE ANALGESIA
     Dosage: 900 MG (900 MG 1/1 DAY)
     Route: 042
     Dates: start: 20141009, end: 20141009
  4. PROPOFOL. [Concomitant]
     Active Substance: PROPOFOL
     Dosage: UNK
     Route: 042
     Dates: start: 20141009, end: 20141009
  5. VEEN 3G [Concomitant]
     Dosage: 500 ML
     Route: 041
     Dates: start: 20141009, end: 20141009
  6. ROCURONIUM BROMIDE. [Concomitant]
     Active Substance: ROCURONIUM BROMIDE
     Dosage: 110 MG
     Route: 041
     Dates: start: 20141009, end: 20141009
  7. REMIFENTANIL HYDROCHLORIDE [Concomitant]
     Active Substance: REMIFENTANIL HYDROCHLORIDE
     Dosage: 1.2 MG
     Route: 041
     Dates: start: 20141009, end: 20141009
  8. FENTANYL CITRATE. [Concomitant]
     Active Substance: FENTANYL CITRATE
     Dosage: 100 ?G
     Route: 041
     Dates: start: 20141009, end: 20141009
  9. PHENYLEPHRINE HYDROCHLORIDE. [Concomitant]
     Active Substance: PHENYLEPHRINE HYDROCHLORIDE
     Dosage: 0.5 MG
     Route: 041
     Dates: start: 20141009, end: 20141009
  10. CEFAZOLIN [Concomitant]
     Active Substance: CEFAZOLIN
     Dosage: 1 G
     Route: 041
     Dates: start: 20141009, end: 20141009
  11. LACTEC [Concomitant]
     Active Substance: CALCIUM CHLORIDE ANHYDROUS\POTASSIUM CHLORIDE\SODIUM CHLORIDE\SODIUM LACTATE
     Dosage: 500 ML
     Route: 041
     Dates: start: 20141009, end: 20141009

REACTIONS (1)
  - Haemorrhage [Recovered/Resolved]

NARRATIVE: CASE EVENT DATE: 20141009
